FAERS Safety Report 6244960-5 (Version None)
Quarter: 2009Q2

REPORT INFORMATION
  Report Type: 
  Country: None (occurrence: None)
  Receive Date: 20090625
  Receipt Date: 20090622
  Transmission Date: 20091009
  Serious: Yes (Death, Hospitalization, Other)
  Sender: FDA-Public Use
  Company Number: PHHY2009BR24874

PATIENT
  Sex: Female

DRUGS (5)
  1. DIOVAN HCT [Suspect]
     Indication: HYPERTENSION
     Dosage: 160/12.5 MG
     Route: 048
     Dates: start: 20050601, end: 20090606
  2. AMIODARONE [Concomitant]
     Indication: CARDIAC DISORDER
     Dosage: 1 TABLET FROM MONDAY TO FRIDAY
     Route: 048
     Dates: start: 20050601, end: 20090606
  3. VERAPAMIL [Concomitant]
     Indication: HYPERTENSION
     Dosage: 1 TABLET IN THE MORNING AND ONE AT NIGHT
     Route: 048
     Dates: start: 20050601, end: 20090606
  4. DAONIL [Concomitant]
     Indication: DIABETES MELLITUS
     Dosage: 1 DF, TID
     Route: 048
     Dates: start: 20050601, end: 20090606
  5. AAS [Concomitant]
     Indication: BLOOD VISCOSITY INCREASED
     Dosage: 2 TABLETS DAILY
     Route: 048
     Dates: start: 20050601, end: 20090606

REACTIONS (6)
  - BONE OPERATION [None]
  - CEREBRAL ISCHAEMIA [None]
  - CEREBROVASCULAR ACCIDENT [None]
  - COMA [None]
  - DEATH [None]
  - NERVOUS SYSTEM DISORDER [None]
